FAERS Safety Report 25405859 (Version 1)
Quarter: 2025Q2

REPORT INFORMATION
  Report Type: Spontaneous
  Country: CA (occurrence: CA)
  Receive Date: 20250606
  Receipt Date: 20250606
  Transmission Date: 20250717
  Serious: Yes (Death, Life-Threatening, Other)
  Sender: AUROBINDO
  Company Number: CA-MLMSERVICE-20250516-PI509318-00059-1

PATIENT
  Age: 79 Year
  Sex: Male

DRUGS (14)
  1. METHOTREXATE [Suspect]
     Active Substance: METHOTREXATE
     Indication: Polymyalgia rheumatica
     Dosage: 25 MILLIGRAM, EVERY WEEK (UP TO 25MG)
     Route: 058
     Dates: start: 2021, end: 2023
  2. METHOTREXATE [Suspect]
     Active Substance: METHOTREXATE
     Indication: Autoinflammatory disease
  3. PREDNISONE [Suspect]
     Active Substance: PREDNISONE
     Indication: Polymyalgia rheumatica
     Dosage: HIGH DOSE, APPROX
     Route: 065
     Dates: start: 2021
  4. PREDNISONE [Suspect]
     Active Substance: PREDNISONE
     Indication: Autoinflammatory disease
     Dosage: TAPERED TO 15MG/D OR LOWER
     Route: 065
     Dates: end: 2023
  5. AZATHIOPRINE [Suspect]
     Active Substance: AZATHIOPRINE
     Indication: Polymyalgia rheumatica
     Dosage: 150 MILLIGRAM, ONCE A DAY
     Route: 065
     Dates: start: 2021, end: 2023
  6. AZATHIOPRINE [Suspect]
     Active Substance: AZATHIOPRINE
     Indication: Autoinflammatory disease
  7. MYCOPHENOLATE MOFETIL [Suspect]
     Active Substance: MYCOPHENOLATE MOFETIL
     Indication: Polymyalgia rheumatica
     Dosage: 1.5 GRAM, TWO TIMES A DAY
     Route: 065
     Dates: start: 2021, end: 2023
  8. MYCOPHENOLATE MOFETIL [Suspect]
     Active Substance: MYCOPHENOLATE MOFETIL
     Indication: Autoinflammatory disease
  9. CYCLOSPORINE [Suspect]
     Active Substance: CYCLOSPORINE
     Indication: Polymyalgia rheumatica
     Dosage: 2.5 MILLIGRAM/KILOGRAM, ONCE A DAY
     Route: 065
     Dates: start: 2021, end: 2023
  10. CYCLOSPORINE [Suspect]
     Active Substance: CYCLOSPORINE
     Indication: Autoinflammatory disease
  11. TOFACITINIB [Suspect]
     Active Substance: TOFACITINIB
     Indication: Polymyalgia rheumatica
     Dosage: 5 MILLIGRAM, TWO TIMES A DAY
     Route: 065
     Dates: start: 2021, end: 2023
  12. TOFACITINIB [Suspect]
     Active Substance: TOFACITINIB
     Indication: Autoinflammatory disease
  13. SARILUMAB [Suspect]
     Active Substance: SARILUMAB
     Indication: Polymyalgia rheumatica
     Route: 058
     Dates: start: 2021, end: 2023
  14. SARILUMAB [Suspect]
     Active Substance: SARILUMAB
     Indication: Autoinflammatory disease

REACTIONS (5)
  - COVID-19 pneumonia [Fatal]
  - Pneumonia [Fatal]
  - Mycobacterium chelonae infection [Fatal]
  - Bacteraemia [Fatal]
  - Drug ineffective [Unknown]
